FAERS Safety Report 20006946 (Version 2)
Quarter: 2021Q4

REPORT INFORMATION
  Report Type: Report from Study
  Country: CA (occurrence: CA)
  Receive Date: 20211028
  Receipt Date: 20211223
  Transmission Date: 20220303
  Serious: Yes (Other)
  Sender: FDA-Public Use
  Company Number: CA-JNJFOC-20211046426

PATIENT
  Sex: Female
  Weight: 73.6 kg

DRUGS (1)
  1. REMICADE [Suspect]
     Active Substance: INFLIXIMAB
     Indication: Crohn^s disease
     Route: 042

REACTIONS (8)
  - Systemic lupus erythematosus [Unknown]
  - Arthritis enteropathic [Unknown]
  - Grip strength decreased [Unknown]
  - Fibromyalgia [Unknown]
  - Restlessness [Unknown]
  - Malaise [Unknown]
  - Infusion related reaction [Unknown]
  - Pain [Unknown]
